FAERS Safety Report 10215187 (Version 2)
Quarter: 2014Q3

REPORT INFORMATION
  Report Type: Spontaneous
  Country: US (occurrence: US)
  Receive Date: 20140603
  Receipt Date: 20140708
  Transmission Date: 20150326
  Serious: Yes (Other)
  Sender: FDA-Public Use
  Company Number: CHPA2014US007486

PATIENT
  Sex: Female

DRUGS (1)
  1. CVS NICOTINE [Suspect]
     Active Substance: NICOTINE
     Indication: SMOKING CESSATION THERAPY
     Dosage: UNK
     Route: 062

REACTIONS (5)
  - Anxiety [Unknown]
  - Drug dependence [Not Recovered/Not Resolved]
  - Headache [Unknown]
  - Sleep disorder [Unknown]
  - Heart rate increased [Unknown]
